FAERS Safety Report 5771096-X (Version None)
Quarter: 2008Q2

REPORT INFORMATION
  Report Type: 
  Country: None (occurrence: None)
  Receive Date: 20080613
  Receipt Date: 20080527
  Transmission Date: 20081010
  Serious: No
  Sender: FDA-Public Use
  Company Number: US-ABBOTT-08P-163-0453390-00

PATIENT
  Sex: Male
  Weight: 90.346 kg

DRUGS (3)
  1. HUMIRA [Suspect]
     Indication: PSORIASIS
     Route: 058
     Dates: start: 20080422
  2. ATORVASTATIN CALCIUM [Concomitant]
     Indication: BLOOD CHOLESTEROL
     Route: 048
  3. HYZAAR [Concomitant]
     Indication: BLOOD PRESSURE
     Route: 048

REACTIONS (1)
  - PROCEDURAL COMPLICATION [None]
